FAERS Safety Report 14696205 (Version 1)
Quarter: 2018Q1

REPORT INFORMATION
  Report Type: Spontaneous
  Country: US (occurrence: US)
  Receive Date: 20180329
  Receipt Date: 20180329
  Transmission Date: 20180509
  Serious: No
  Sender: FDA-Public Use
  Company Number: US-SA-2018SA048540

PATIENT
  Age: 54 Year
  Sex: Male

DRUGS (1)
  1. ALLEGRA D-12 HOUR [Suspect]
     Active Substance: FEXOFENADINE HYDROCHLORIDE\PSEUDOEPHEDRINE HYDROCHLORIDE
     Route: 065

REACTIONS (9)
  - Dyspnoea [Unknown]
  - Hypertension [Unknown]
  - Feeling abnormal [Unknown]
  - Heart rate increased [Unknown]
  - Insomnia [Unknown]
  - Somnolence [Unknown]
  - Ear disorder [Unknown]
  - Neck pain [Unknown]
  - Chest discomfort [Unknown]
